FAERS Safety Report 4658174-3 (Version None)
Quarter: 2005Q2

REPORT INFORMATION
  Report Type: 
  Country: None (occurrence: None)
  Receive Date: 20050504
  Receipt Date: 20041102
  Transmission Date: 20051028
  Serious: Yes (Other)
  Sender: FDA-Public Use
  Company Number: PHEH2004US08477

PATIENT
  Age: 49 Year
  Sex: Female
  Weight: 84.8 kg

DRUGS (4)
  1. DIOVAN HCT [Suspect]
     Indication: HYPERTENSION
     Dosage: 160/12.5 MG DAILY, ORAL; SEE IMAGE
     Route: 048
     Dates: start: 20040702, end: 20040727
  2. DIOVAN HCT [Suspect]
     Indication: HYPERTENSION
     Dosage: 160/12.5 MG DAILY, ORAL; SEE IMAGE
     Route: 048
     Dates: start: 20040608
  3. SYNTHROID [Concomitant]
  4. XANAX [Concomitant]

REACTIONS (5)
  - ALANINE AMINOTRANSFERASE INCREASED [None]
  - ASPARTATE AMINOTRANSFERASE INCREASED [None]
  - BLOOD ALKALINE PHOSPHATASE INCREASED [None]
  - HEPATITIS [None]
  - LIVER FUNCTION TEST ABNORMAL [None]
